FAERS Safety Report 8281837-8 (Version None)
Quarter: 2012Q2

REPORT INFORMATION
  Report Type: 
  Country: None (occurrence: None)
  Receive Date: 20120410
  Receipt Date: 20120407
  Transmission Date: 20120825
  Serious: Yes (Hospitalization, Other)
  Sender: FDA-Public Use
  Company Number: ADR-2011-11271

PATIENT
  Age: 35 Year
  Sex: Male

DRUGS (1)
  1. LIORESAL [Suspect]
     Indication: MUSCLE SPASTICITY
     Dosage: MCG, DAILY, INTRATH
     Route: 037

REACTIONS (5)
  - BLOOD PRESSURE INCREASED [None]
  - ENCEPHALOPATHY [None]
  - HYPOTENSION [None]
  - HYPONATRAEMIA [None]
  - CONVULSION [None]
